FAERS Safety Report 8921659 (Version 1)
Quarter: 2012Q4

REPORT INFORMATION
  Report Type: 
  Country: CH (occurrence: CH)
  Receive Date: 20121121
  Receipt Date: 20121121
  Transmission Date: 20130627
  Serious: Yes (Disabling)
  Sender: FDA-Public Use
  Company Number: CH-ROCHE-302155

PATIENT
  Age: 81 Year
  Sex: Female

DRUGS (9)
  1. ROCEPHIN [Suspect]
     Indication: PROPHYLAXIS
     Route: 042
     Dates: start: 20011002, end: 20011005
  2. ZOVIRAX [Suspect]
     Indication: HERPES ZOSTER
     Route: 042
     Dates: start: 20011002, end: 20011014
  3. FAMVIR [Suspect]
     Indication: HERPES ZOSTER
     Route: 048
     Dates: start: 20011001, end: 20011002
  4. DAFALGAN [Suspect]
     Indication: PRODUCT USED FOR UNKNOWN INDICATION
     Route: 048
     Dates: start: 20011005, end: 20011014
  5. AMOXICILLIN [Suspect]
     Indication: PROPHYLAXIS
     Route: 042
     Dates: start: 20011002, end: 20011005
  6. FOLVITE [Concomitant]
     Route: 048
  7. TRAMAL [Concomitant]
     Dosage: Form Strength=10 MG/ML
     Route: 048
     Dates: start: 20011002, end: 20011013
  8. ULCOGANT [Concomitant]
     Route: 048
     Dates: start: 20011011, end: 20011023
  9. FRAGMIN [Concomitant]
     Route: 058

REACTIONS (1)
  - Hepatocellular injury [Recovering/Resolving]
